FAERS Safety Report 15230056 (Version 1)
Quarter: 2018Q3

REPORT INFORMATION
  Report Type: Spontaneous
  Country: US (occurrence: US)
  Receive Date: 20180802
  Receipt Date: 20180802
  Transmission Date: 20181010
  Serious: Yes (Other)
  Sender: FDA-Public Use
  Company Number: US-ACCORD-062884

PATIENT
  Age: 67 Year
  Sex: Female
  Weight: 80.74 kg

DRUGS (9)
  1. CHONDROITIN SULFATE/GLUCOSAMINE [Concomitant]
     Dosage: 1 TABLET DAILY
  2. ACETYLSALICYLIC ACID [Concomitant]
     Active Substance: ASPIRIN
  3. CYANOCOBALAMIN. [Concomitant]
     Active Substance: CYANOCOBALAMIN
  4. CALTRATE [Concomitant]
     Active Substance: CALCIUM CARBONATE
  5. DOCETAXEL ACCORD [Suspect]
     Active Substance: DOCETAXEL
     Indication: BREAST CANCER STAGE I
     Dosage: DOSE: 75 MG/M2
     Route: 042
     Dates: start: 20110516, end: 20110808
  6. MAGNESIUM OXIDE. [Concomitant]
     Active Substance: MAGNESIUM OXIDE
     Dosage: EVERY FRIDAY
  7. FISH OIL [Concomitant]
     Active Substance: FISH OIL
     Dosage: 1 CAPSULE DAILY
  8. CYCLOPHOSPHAMIDE. [Suspect]
     Active Substance: CYCLOPHOSPHAMIDE
     Indication: BREAST CANCER STAGE I
     Dosage: DOSE: 600 MG/M2
     Route: 042
     Dates: start: 20110516, end: 20110808
  9. IRON [Concomitant]
     Active Substance: IRON
     Dosage: STRENGTH: 325 MG

REACTIONS (1)
  - Alopecia [Not Recovered/Not Resolved]

NARRATIVE: CASE EVENT DATE: 20110601
